FAERS Safety Report 16049170 (Version 3)
Quarter: 2019Q2

REPORT INFORMATION
  Report Type: Spontaneous
  Country: US (occurrence: US)
  Receive Date: 20190307
  Receipt Date: 20190501
  Transmission Date: 20190711
  Serious: Yes (Disabling, Other)
  Sender: FDA-Public Use
  Company Number: US-ASTRAZENECA-2018SF33858

PATIENT
  Age: 22066 Day
  Sex: Female
  Weight: 59 kg

DRUGS (40)
  1. NEXIUM [Suspect]
     Active Substance: ESOMEPRAZOLE MAGNESIUM
     Route: 048
     Dates: start: 20110217
  2. PRILOSEC OTC [Suspect]
     Active Substance: OMEPRAZOLE MAGNESIUM
     Route: 048
     Dates: start: 20060701, end: 20170622
  3. INSULIN [Concomitant]
     Active Substance: INSULIN NOS
  4. PREDNISONE. [Concomitant]
     Active Substance: PREDNISONE
  5. PRILOSEC [Suspect]
     Active Substance: OMEPRAZOLE MAGNESIUM
     Route: 048
     Dates: start: 20091031
  6. PREVACID [Suspect]
     Active Substance: LANSOPRAZOLE
     Route: 065
     Dates: start: 20090427
  7. PROTONIX [Suspect]
     Active Substance: PANTOPRAZOLE SODIUM
     Route: 048
     Dates: start: 20171217
  8. CRESTOR [Concomitant]
     Active Substance: ROSUVASTATIN CALCIUM
  9. ASA [Concomitant]
     Active Substance: ASPIRIN
  10. NOVOLOG [Concomitant]
     Active Substance: INSULIN ASPART
  11. LISINOPRIL. [Concomitant]
     Active Substance: LISINOPRIL
  12. HYDROCODONE W/ACETAMINOPHEN [Concomitant]
     Active Substance: ACETAMINOPHEN\HYDROCODONE BITARTRATE
  13. PROTONIX [Suspect]
     Active Substance: PANTOPRAZOLE SODIUM
     Route: 065
     Dates: start: 200611, end: 201206
  14. MINOXIDIL. [Concomitant]
     Active Substance: MINOXIDIL
  15. METOCLOPRAMIDE. [Concomitant]
     Active Substance: METOCLOPRAMIDE
  16. TOPROL XL [Concomitant]
     Active Substance: METOPROLOL SUCCINATE
  17. PRILOSEC [Suspect]
     Active Substance: OMEPRAZOLE MAGNESIUM
     Route: 048
     Dates: start: 200611, end: 201206
  18. PRILOSEC [Suspect]
     Active Substance: OMEPRAZOLE MAGNESIUM
     Route: 048
     Dates: start: 20040101, end: 20070101
  19. PRILOSEC OTC [Suspect]
     Active Substance: OMEPRAZOLE MAGNESIUM
     Route: 048
     Dates: start: 200611, end: 201206
  20. COREG [Concomitant]
     Active Substance: CARVEDILOL
  21. CARVEDILOL. [Concomitant]
     Active Substance: CARVEDILOL
  22. LEVEMIR [Concomitant]
     Active Substance: INSULIN DETEMIR
  23. CIPROFLOXACIN. [Concomitant]
     Active Substance: CIPROFLOXACIN
  24. IBUPROFEN. [Concomitant]
     Active Substance: IBUPROFEN
  25. METFORMIN [Concomitant]
     Active Substance: METFORMIN HYDROCHLORIDE
  26. NEXIUM 24HR [Suspect]
     Active Substance: ESOMEPRAZOLE MAGNESIUM
     Route: 048
     Dates: start: 200611, end: 201206
  27. LASIX [Concomitant]
     Active Substance: FUROSEMIDE
  28. NEXIUM [Suspect]
     Active Substance: ESOMEPRAZOLE MAGNESIUM
     Dosage: 40 MG DAILY
     Route: 048
     Dates: start: 20061113, end: 20120623
  29. PREVACID [Suspect]
     Active Substance: LANSOPRAZOLE
     Route: 065
     Dates: start: 200611, end: 201206
  30. AMLODIPINE [Concomitant]
     Active Substance: AMLODIPINE BESYLATE
  31. AZITHROMYCIN ANHYDROUS. [Concomitant]
     Active Substance: AZITHROMYCIN ANHYDROUS
  32. NEXIUM [Suspect]
     Active Substance: ESOMEPRAZOLE MAGNESIUM
     Route: 048
     Dates: start: 200611, end: 201206
  33. EXFORGE [Concomitant]
     Active Substance: AMLODIPINE BESYLATE\VALSARTAN
  34. VERAPAMIL [Concomitant]
     Active Substance: VERAPAMIL HYDROCHLORIDE
  35. STARLIX [Concomitant]
     Active Substance: NATEGLINIDE
  36. PREVACID [Suspect]
     Active Substance: LANSOPRAZOLE
     Dosage: 40 MG DAILY
     Route: 065
     Dates: start: 20090503, end: 20100106
  37. NIASPAN [Concomitant]
     Active Substance: NIACIN
  38. CLONIDINE. [Concomitant]
     Active Substance: CLONIDINE
  39. AMOXICILLIN. [Concomitant]
     Active Substance: AMOXICILLIN
  40. HYDROCODONE [Concomitant]
     Active Substance: HYDROCODONE

REACTIONS (4)
  - Renal injury [Unknown]
  - Renal failure [Unknown]
  - End stage renal disease [Not Recovered/Not Resolved]
  - Chronic kidney disease [Unknown]

NARRATIVE: CASE EVENT DATE: 20151106
